FAERS Safety Report 19117457 (Version 3)
Quarter: 2021Q3

REPORT INFORMATION
  Report Type: Report from Study
  Country: US (occurrence: US)
  Receive Date: 20210410
  Receipt Date: 20210715
  Transmission Date: 20211014
  Serious: Yes (Other)
  Sender: FDA-Public Use
  Company Number: NVSC2021US076954

PATIENT
  Age: 42 Year
  Sex: Female

DRUGS (3)
  1. COREG [Concomitant]
     Active Substance: CARVEDILOL
     Indication: PRODUCT USED FOR UNKNOWN INDICATION
     Dosage: UNK
     Route: 065
  2. ENTRESTO [Suspect]
     Active Substance: SACUBITRIL\VALSARTAN
     Indication: CARDIAC FAILURE
     Dosage: 50 MG, BID (24/26 MG)
     Route: 048
     Dates: start: 20210329
  3. VOTRIENT [Concomitant]
     Active Substance: PAZOPANIB HYDROCHLORIDE
     Indication: PRODUCT USED FOR UNKNOWN INDICATION
     Dosage: UNK
     Route: 065
     Dates: start: 202106

REACTIONS (9)
  - Depression [Not Recovered/Not Resolved]
  - Weight increased [Unknown]
  - Weight decreased [Unknown]
  - Weight fluctuation [Not Recovered/Not Resolved]
  - Decreased appetite [Unknown]
  - Fluid imbalance [Unknown]
  - Hypotension [Unknown]
  - Concomitant disease progression [Not Recovered/Not Resolved]
  - Stress [Not Recovered/Not Resolved]

NARRATIVE: CASE EVENT DATE: 202103
